FAERS Safety Report 4263648-3 (Version None)
Quarter: 2004Q1

REPORT INFORMATION
  Report Type: 
  Country: None (occurrence: None)
  Receive Date: 20040102
  Receipt Date: 20031224
  Transmission Date: 20041129
  Serious: Yes (Hospitalization)
  Sender: FDA-Public Use
  Company Number: JP-JNJFOC-20031204884

PATIENT
  Age: 89 Year
  Sex: Female
  Weight: 37 kg

DRUGS (10)
  1. GALANTAMINE- BLINDED (GALANTAMINE) TABLETS [Suspect]
     Indication: DEMENTIA ALZHEIMER'S TYPE
     Dosage: SEE IMAGE
     Route: 048
     Dates: end: 20031118
  2. GALANTAMINE- BLINDED (GALANTAMINE) TABLETS [Suspect]
     Indication: DEMENTIA ALZHEIMER'S TYPE
     Dosage: SEE IMAGE
     Route: 048
     Dates: start: 20030909
  3. PLACEBO (PLACEBO) TABLETS [Suspect]
     Indication: DEMENTIA ALZHEIMER'S TYPE
     Dosage: SEE IMAGE
     Route: 048
     Dates: end: 20031118
  4. PLACEBO (PLACEBO) TABLETS [Suspect]
     Indication: DEMENTIA ALZHEIMER'S TYPE
     Dosage: SEE IMAGE
     Route: 048
     Dates: start: 20030909
  5. ALTAT (ROXATIDINE ACETATE HYDROCHLORIDE) CAPSULES [Concomitant]
  6. TOWARAT-L (NIFEDIPINE) UNKNOWN [Concomitant]
  7. DIASERAL-L (ISOSORBIDE DINITRATE) TABLETS [Concomitant]
  8. SAYMOTIN S (KALLIDINOGENASE) TABLETS [Concomitant]
  9. MEDAZEPAM (MEDAZEPAM) TABLETS [Concomitant]
  10. WINTERMIN (CHLORPROMAZINE HYDROCHLORIDE) UNKNOWN [Concomitant]

REACTIONS (7)
  - ALANINE AMINOTRANSFERASE INCREASED [None]
  - ASPARTATE AMINOTRANSFERASE INCREASED [None]
  - BLOOD ALKALINE PHOSPHATASE INCREASED [None]
  - BLOOD LACTATE DEHYDROGENASE INCREASED [None]
  - FACE OEDEMA [None]
  - GAMMA-GLUTAMYLTRANSFERASE INCREASED [None]
  - HEPATIC FUNCTION ABNORMAL [None]
